FAERS Safety Report 7206078-4 (Version None)
Quarter: 2010Q4

REPORT INFORMATION
  Report Type: 
  Country: None (occurrence: None)
  Receive Date: 20101229
  Receipt Date: 20101229
  Transmission Date: 20110411
  Serious: No
  Sender: FDA-Public Use
  Company Number: None

PATIENT
  Sex: Female
  Weight: 77 kg

DRUGS (2)
  1. TAXOL [Suspect]
     Dosage: 327 MG
     Dates: end: 20101117
  2. CARBOPLATIN [Suspect]
     Dosage: 435 MG
     Dates: end: 20101117

REACTIONS (7)
  - ABDOMINAL MASS [None]
  - ABDOMINAL PAIN [None]
  - ALANINE AMINOTRANSFERASE INCREASED [None]
  - ASPARTATE AMINOTRANSFERASE INCREASED [None]
  - HEPATIC ENZYME INCREASED [None]
  - METASTATIC NEOPLASM [None]
  - MUSCLE MASS [None]
